FAERS Safety Report 8069603-X (Version None)
Quarter: 2012Q1

REPORT INFORMATION
  Report Type: 
  Country: None (occurrence: None)
  Receive Date: 20120125
  Receipt Date: 20120112
  Transmission Date: 20120608
  Serious: Yes (Hospitalization, Other)
  Sender: FDA-Public Use
  Company Number: CA-ELI_LILLY_AND_COMPANY-CA201201004785

PATIENT
  Sex: Female
  Weight: 57.1 kg

DRUGS (5)
  1. ZOLEDRONOC ACID [Concomitant]
     Dosage: 5 MG, UNK
     Dates: end: 20110701
  2. CALCIUM [Concomitant]
     Dosage: 500 MG, QD
     Dates: start: 20010427
  3. VITAMIN D [Concomitant]
     Dosage: 800 IU, QD
     Dates: start: 20010427
  4. FORTEO [Suspect]
     Indication: OSTEOPOROSIS
  5. FOSAMAX [Concomitant]
     Dosage: 70 MG, WEEKLY (1/W)
     Dates: start: 19990506

REACTIONS (3)
  - DECREASED ACTIVITY [None]
  - BEDRIDDEN [None]
  - FEMUR FRACTURE [None]
